FAERS Safety Report 12201042 (Version 1)
Quarter: 2016Q1

REPORT INFORMATION
  Report Type: Spontaneous
  Country: US (occurrence: US)
  Receive Date: 20160322
  Receipt Date: 20160322
  Transmission Date: 20160526
  Serious: Yes (Other)
  Sender: FDA-Public Use
  Company Number: US-LPDUSPRD-20160246

PATIENT
  Age: 31 Year
  Sex: Male

DRUGS (5)
  1. ANTIHISTAMINE, UNSPECIFIED [Concomitant]
     Dosage: DOSE NOT PROVIDED
     Route: 065
  2. ACE INHIBITOR, UNSPECIFIED [Concomitant]
     Dosage: DOSE NOT PROVIDED
     Route: 065
  3. PRAVASTATIN [Concomitant]
     Active Substance: PRAVASTATIN\PRAVASTATIN SODIUM
     Route: 065
  4. CYCLOSPORINE INJECTION, USP (866-10) [Suspect]
     Active Substance: CYCLOSPORINE
     Dosage: DOSE NOT PROVIDED
     Route: 065
  5. LEVOTHYROXINE. [Concomitant]
     Active Substance: LEVOTHYROXINE
     Dosage: DOSE NOT PROVIDED
     Route: 065

REACTIONS (1)
  - Gingival hyperplasia [Unknown]
